FAERS Safety Report 9654348 (Version 1)
Quarter: 2013Q4

REPORT INFORMATION
  Report Type: Spontaneous
  Country: US (occurrence: US)
  Receive Date: 20131029
  Receipt Date: 20131029
  Transmission Date: 20140711
  Serious: Yes (Other)
  Sender: FDA-Public Use
  Company Number: US-ALLERGAN-1316560US

PATIENT
  Sex: Female

DRUGS (2)
  1. RESTASIS [Suspect]
     Indication: PRODUCT USED FOR UNKNOWN INDICATION
     Dosage: UNK - 2 DOSES
     Route: 047
     Dates: start: 20131018, end: 20131019
  2. SYSTANE ULTRA [Concomitant]
     Indication: PRODUCT USED FOR UNKNOWN INDICATION
     Dosage: UNK

REACTIONS (6)
  - Abnormal sensation in eye [Unknown]
  - Oropharyngeal discomfort [Unknown]
  - Dizziness [Unknown]
  - Tongue oedema [Unknown]
  - Pharyngeal oedema [Unknown]
  - Eye pruritus [Unknown]
